FAERS Safety Report 6823029-2 (Version None)
Quarter: 2010Q3

REPORT INFORMATION
  Report Type: 
  Country: None (occurrence: None)
  Receive Date: 20100708
  Receipt Date: 20100702
  Transmission Date: 20110219
  Serious: Yes (Other)
  Sender: FDA-Public Use
  Company Number: B0565737A

PATIENT
  Sex: Female

DRUGS (2)
  1. CLENIL MODULITE [Suspect]
     Route: 055
  2. VENTOLIN [Concomitant]

REACTIONS (2)
  - COUGH [None]
  - THROAT IRRITATION [None]
